FAERS Safety Report 9625554 (Version 2)
Quarter: 2013Q4

REPORT INFORMATION
  Report Type: Spontaneous
  Country: GB (occurrence: GB)
  Receive Date: 20131016
  Receipt Date: 20131107
  Transmission Date: 20140711
  Serious: Yes (Hospitalization, Other)
  Sender: FDA-Public Use
  Company Number: PHFR2013GB005789

PATIENT
  Sex: Male

DRUGS (6)
  1. CLOZARIL [Suspect]
     Indication: SCHIZOPHRENIA
     Dosage: UNK UKN, UNK
     Route: 048
     Dates: start: 20101014
  2. CLOZARIL [Suspect]
     Dosage: 200 MG, QHS
     Dates: start: 20130415
  3. CLOZAPINE [Concomitant]
     Indication: SCHIZOPHRENIA
     Dosage: 50 MG, QHS
     Dates: start: 20130415
  4. KWELL [Concomitant]
     Indication: SCHIZOPHRENIA
     Dosage: 300 UG, TID
     Dates: start: 20130415
  5. SIMVASTATIN [Concomitant]
     Indication: CARDIOVASCULAR DISORDER
     Dosage: 1 DF, QHS
     Dates: start: 20130415
  6. PROCYCLIDINE [Concomitant]
     Dosage: HALF A TABLET ONCE OR TWICE, DAILY

REACTIONS (10)
  - Ankle fracture [Unknown]
  - Fracture displacement [Unknown]
  - Joint injury [Unknown]
  - Fall [Unknown]
  - Deformity [Unknown]
  - Formication [Unknown]
  - Paraesthesia [Unknown]
  - Erythema [Unknown]
  - Contusion [Unknown]
  - Feeling hot [Unknown]
